FAERS Safety Report 11363059 (Version 2)
Quarter: 2015Q3

REPORT INFORMATION
  Report Type: Spontaneous
  Country: VE (occurrence: None)
  Receive Date: 20150807
  Receipt Date: 20150921
  Transmission Date: 20151125
  Serious: Yes (Other)
  Sender: FDA-Public Use
  Company Number: ADR-2015-01477

PATIENT
  Age: 30 Year
  Sex: Male

DRUGS (1)
  1. LIORESAL [Suspect]
     Active Substance: BACLOFEN

REACTIONS (6)
  - Performance status decreased [None]
  - Fear of falling [None]
  - Dyskinesia [None]
  - Diplegia [None]
  - Depression [None]
  - Musculoskeletal stiffness [None]
